FAERS Safety Report 24024013 (Version 3)
Quarter: 2024Q2

REPORT INFORMATION
  Report Type: Report from Study
  Country: AU (occurrence: AU)
  Receive Date: 20240627
  Receipt Date: 20240628
  Transmission Date: 20240716
  Serious: No
  Sender: FDA-Public Use
  Company Number: AU-ROCHE-3174777

PATIENT
  Age: 63 Year
  Sex: Female
  Weight: 87.1 kg

DRUGS (18)
  1. ALECTINIB [Suspect]
     Active Substance: ALECTINIB
     Indication: Non-small cell lung cancer metastatic
     Route: 048
     Dates: start: 20200728
  2. ALECTINIB [Suspect]
     Active Substance: ALECTINIB
     Route: 048
     Dates: start: 20211026
  3. OSTEOVIT-D [Concomitant]
     Indication: Vitamin D decreased
     Route: 048
     Dates: start: 202110
  4. MIRTAZAPINE [Concomitant]
     Active Substance: MIRTAZAPINE
     Indication: Depression
     Route: 048
  5. PROMENSIL [Concomitant]
     Indication: Night sweats
     Dosage: 285
     Route: 048
     Dates: start: 202110
  6. MAGNESIUM [Concomitant]
     Active Substance: MAGNESIUM
     Indication: Muscle spasms
     Route: 048
  7. TEMAZEPAM [Concomitant]
     Active Substance: TEMAZEPAM
     Dosage: FREQUENCY TEXT:PRN
     Route: 048
  8. NEXIUM [Concomitant]
     Active Substance: ESOMEPRAZOLE MAGNESIUM
     Route: 048
     Dates: start: 20220203
  9. NASONEX [Concomitant]
     Active Substance: MOMETASONE FUROATE
     Indication: Rhinorrhoea
     Dosage: FREQUENCY TEXT:PRN
     Route: 045
     Dates: start: 202207, end: 202208
  10. LYRICA [Concomitant]
     Active Substance: PREGABALIN
     Indication: Pain
     Dosage: FREQUENCY TEXT:PRN
     Route: 048
     Dates: start: 2022
  11. LYRICA [Concomitant]
     Active Substance: PREGABALIN
     Route: 048
     Dates: start: 20191118
  12. ACETAMINOPHEN [Concomitant]
     Active Substance: ACETAMINOPHEN
     Indication: Pain
     Dosage: FREQUENCY TEXT:PRN
     Route: 048
     Dates: start: 20191118, end: 20221207
  13. ACETAMINOPHEN [Concomitant]
     Active Substance: ACETAMINOPHEN
     Route: 048
     Dates: start: 20220902, end: 20220919
  14. ACETAMINOPHEN [Concomitant]
     Active Substance: ACETAMINOPHEN
     Route: 048
  15. NALOXONE HYDROCHLORIDE\OXYCODONE HYDROCHLORIDE [Concomitant]
     Active Substance: NALOXONE HYDROCHLORIDE\OXYCODONE HYDROCHLORIDE
     Indication: Pain
     Route: 048
     Dates: start: 20191118
  16. AMOXICILLIN\CLAVULANATE POTASSIUM [Concomitant]
     Active Substance: AMOXICILLIN\CLAVULANATE POTASSIUM
     Indication: Bacteraemia
     Route: 048
     Dates: start: 20221207, end: 20221216
  17. ACETAMINOPHEN\CODEINE PHOSPHATE [Concomitant]
     Active Substance: ACETAMINOPHEN\CODEINE PHOSPHATE
  18. OXYCODONE HYDROCHLORIDE [Concomitant]
     Active Substance: OXYCODONE HYDROCHLORIDE

REACTIONS (6)
  - Human rhinovirus test positive [Recovered/Resolved]
  - Lower respiratory tract infection [Recovered/Resolved]
  - Gastrooesophageal reflux disease [Not Recovered/Not Resolved]
  - Candida infection [Recovered/Resolved]
  - Nausea [Not Recovered/Not Resolved]
  - Respiratory tract infection [Not Recovered/Not Resolved]

NARRATIVE: CASE EVENT DATE: 20220801
